FAERS Safety Report 12502345 (Version 2)
Quarter: 2017Q3

REPORT INFORMATION
  Report Type: Report from Study
  Country: None (occurrence: US)
  Receive Date: 20160627
  Receipt Date: 20170811
  Transmission Date: 20171127
  Serious: Yes (Hospitalization, Other)
  Sender: FDA-Public Use
  Company Number: US-ABBVIE-16K-163-1662003-00

PATIENT
  Age: 78 Year
  Sex: Female

DRUGS (1)
  1. HUMIRA [Suspect]
     Active Substance: ADALIMUMAB
     Indication: PSORIASIS
     Route: 058
     Dates: start: 20141119, end: 2016

REACTIONS (11)
  - Pyrexia [Recovered/Resolved]
  - Fall [Recovered/Resolved]
  - Sepsis [Recovered/Resolved]
  - Cholelithiasis [Recovered/Resolved]
  - Injection site pain [Unknown]
  - Hepatomegaly [Unknown]
  - Nephrolithiasis [Recovered/Resolved]
  - Psoriasis [Unknown]
  - Arthralgia [Unknown]
  - Foot fracture [Unknown]
  - Asthenia [Recovered/Resolved]

NARRATIVE: CASE EVENT DATE: 201604
